FAERS Safety Report 10240130 (Version 1)
Quarter: 2014Q2

REPORT INFORMATION
  Report Type: Spontaneous
  Country: SE (occurrence: SE)
  Receive Date: 20140617
  Receipt Date: 20140617
  Transmission Date: 20141212
  Serious: Yes (Disabling, Other)
  Sender: FDA-Public Use
  Company Number: SE-AMGEN-SWESP2014044276

PATIENT
  Age: 12 Year
  Sex: Male

DRUGS (4)
  1. ENBREL [Suspect]
     Indication: PSORIASIS
     Dosage: 50 MG, WEEKLY
     Route: 058
     Dates: start: 20130516, end: 201306
  2. ENBREL [Suspect]
     Dosage: 25 MG, WEEKLY
     Route: 058
     Dates: start: 201306, end: 201312
  3. ENBREL [Suspect]
     Dosage: 12.5 MG, WEEKLY
     Route: 065
  4. ENBREL [Suspect]
     Dosage: 25 MG, WEEKLY
     Route: 065
     Dates: end: 201402

REACTIONS (2)
  - Cholangitis sclerosing [Not Recovered/Not Resolved]
  - Crohn^s disease [Not Recovered/Not Resolved]
